FAERS Safety Report 9681279 (Version 1)
Quarter: 2013Q4

REPORT INFORMATION
  Report Type: Spontaneous
  Country: FR (occurrence: FR)
  Receive Date: 20131111
  Receipt Date: 20131111
  Transmission Date: 20140711
  Serious: Yes (Hospitalization)
  Sender: FDA-Public Use
  Company Number: FR-PFIZER INC-2013314435

PATIENT
  Age: 64 Year
  Sex: Male

DRUGS (8)
  1. TAHOR [Suspect]
     Dosage: UNK
  2. EPITOMAX [Suspect]
     Indication: EPILEPSY
     Dosage: 200 MG, TWICE DAILY
  3. SILODYX [Suspect]
     Dosage: UNK
  4. BRICANYL TURBUHALER [Suspect]
     Dosage: UNK
  5. COAPROVEL [Suspect]
     Dosage: UNK
  6. LANSOPRAZOLE [Suspect]
     Dosage: UNK
  7. ZYLORIC [Suspect]
     Dosage: UNK
  8. INSULIN [Suspect]
     Dosage: UNK

REACTIONS (1)
  - Metabolic acidosis [Not Recovered/Not Resolved]
